FAERS Safety Report 6265885-5 (Version None)
Quarter: 2009Q3

REPORT INFORMATION
  Report Type: 
  Country: None (occurrence: None)
  Receive Date: 20090709
  Receipt Date: 20090709
  Transmission Date: 20100115
  Serious: Yes (Other)
  Sender: FDA-Public Use
  Company Number: None

PATIENT
  Sex: Female
  Weight: 56.6996 kg

DRUGS (1)
  1. CITALOPRAM HYDROBROMIDE [Suspect]
     Indication: DEPRESSION
     Dosage: 1 TABLET, 20 MG 1 TIME PER DAY PO
     Route: 048
     Dates: start: 20090618, end: 20090620

REACTIONS (5)
  - HOMICIDAL IDEATION [None]
  - SELF-INJURIOUS IDEATION [None]
  - SUICIDAL IDEATION [None]
  - TACHYPHRENIA [None]
  - VIOLENCE-RELATED SYMPTOM [None]
